FAERS Safety Report 20611373 (Version 5)
Quarter: 2023Q1

REPORT INFORMATION
  Report Type: Spontaneous
  Country: US (occurrence: US)
  Receive Date: 20220318
  Receipt Date: 20230214
  Transmission Date: 20230418
  Serious: Yes (Other)
  Sender: FDA-Public Use
  Company Number: US-PFIZER INC-2021729491

PATIENT
  Age: 56 Year
  Sex: Female

DRUGS (1)
  1. ESTRING [Suspect]
     Active Substance: ESTRADIOL
     Indication: Atrophic vulvovaginitis
     Dosage: 1 DF, EVERY 3 MONTHS (INSERT ONE RING VAGINALLY EVERY 3 MONTHS)
     Route: 067

REACTIONS (2)
  - Breast cancer stage III [Unknown]
  - Contraindicated product administered [Unknown]
